FAERS Safety Report 17754556 (Version 2)
Quarter: 2020Q2

REPORT INFORMATION
  Report Type: Report from Study
  Country: FR (occurrence: FR)
  Receive Date: 20200507
  Receipt Date: 20200512
  Transmission Date: 20200714
  Serious: Yes (Hospitalization, Other)
  Sender: FDA-Public Use
  Company Number: FR-AUROBINDO-AUR-APL-2020-021819

PATIENT

DRUGS (3)
  1. DIDANOSINE. [Suspect]
     Active Substance: DIDANOSINE
     Indication: HIV INFECTION
     Dosage: UNK
     Route: 065
  2. NEVIRAPINE. [Suspect]
     Active Substance: NEVIRAPINE
     Indication: HIV INFECTION
     Dosage: UNK
     Route: 065
  3. STAVUDINE. [Suspect]
     Active Substance: STAVUDINE
     Indication: HIV INFECTION
     Dosage: UNK
     Route: 065

REACTIONS (7)
  - Immune reconstitution inflammatory syndrome [Recovered/Resolved]
  - Pleural effusion [Recovered/Resolved]
  - Large intestinal ulcer [Recovered/Resolved]
  - Histoplasmosis [Recovered/Resolved]
  - Anaemia [Recovered/Resolved]
  - Cachexia [Recovered/Resolved]
  - Unmasking of previously unidentified disease [Recovering/Resolving]
